FAERS Safety Report 6319440-9 (Version None)
Quarter: 2009Q3

REPORT INFORMATION
  Report Type: 
  Country: None (occurrence: None)
  Receive Date: 20090822
  Receipt Date: 20080908
  Transmission Date: 20100115
  Serious: No
  Sender: FDA-Public Use
  Company Number: US-ABBOTT-08P-163-0474732-00

PATIENT
  Sex: Male
  Weight: 75.818 kg

DRUGS (6)
  1. NIASPAN [Suspect]
     Indication: BLOOD CHOLESTEROL
     Route: 048
     Dates: start: 20080827, end: 20080903
  2. NIASPAN [Suspect]
     Route: 048
     Dates: start: 20080903, end: 20080904
  3. NIASPAN [Suspect]
     Route: 048
     Dates: start: 20080904
  4. LISINOPRIL [Concomitant]
     Indication: BLOOD PRESSURE
     Route: 048
  5. AMLODIPINE [Concomitant]
     Indication: CARDIAC DISORDER
     Route: 048
  6. ASPIRIN [Concomitant]
     Indication: ANTICOAGULANT THERAPY
     Route: 048

REACTIONS (2)
  - FLUSHING [None]
  - PARAESTHESIA [None]
